FAERS Safety Report 8911135 (Version 1)
Quarter: 2012Q4

REPORT INFORMATION
  Report Type: 
  Country: ES (occurrence: ES)
  Receive Date: 20121115
  Receipt Date: 20121115
  Transmission Date: 20130627
  Serious: Yes (Hospitalization)
  Sender: FDA-Public Use
  Company Number: ES-009507513-1211ESP006133

PATIENT
  Age: 89 Year
  Sex: Female

DRUGS (4)
  1. EZETROL 10 MG COMPRIMIDOS [Suspect]
     Indication: DYSLIPIDAEMIA
     Dosage: 10 mg, qd
     Route: 048
     Dates: start: 20111116, end: 20120203
  2. SINTROM [Concomitant]
     Indication: ATRIAL FIBRILLATION
     Dosage: UNK
     Route: 048
     Dates: start: 20111116, end: 20120206
  3. METFORMIN [Concomitant]
     Indication: DIABETES MELLITUS
     Dosage: UNK
     Dates: start: 201011
  4. RISPERDAL [Concomitant]
     Indication: BEHAVIOURAL AND PSYCHIATRIC SYMPTOMS OF DEMENTIA
     Dosage: 1 mg, qd
     Route: 048
     Dates: start: 201106

REACTIONS (2)
  - Anaemia [Recovered/Resolved]
  - Hypocoagulable state [Recovered/Resolved]
